FAERS Safety Report 6956076-0 (Version None)
Quarter: 2010Q3

REPORT INFORMATION
  Report Type: 
  Country: None (occurrence: None)
  Receive Date: 20100830
  Receipt Date: 20091009
  Transmission Date: 20110219
  Serious: Yes (Other)
  Sender: FDA-Public Use
  Company Number: US-AMGEN-QUU366889

PATIENT
  Sex: Male
  Weight: 79.9 kg

DRUGS (16)
  1. NEUPOGEN [Suspect]
     Indication: CHEMOTHERAPY
     Route: 058
     Dates: start: 20090920, end: 20090927
  2. MAGNESIUM SULFATE [Suspect]
     Route: 042
  3. ALOXI [Concomitant]
  4. TRICOR [Concomitant]
  5. TOPROL-XL [Concomitant]
  6. PLAVIX [Concomitant]
  7. NORVASC [Concomitant]
  8. NEXIUM [Concomitant]
  9. JANUMET [Concomitant]
  10. ASPIRIN [Concomitant]
  11. ATIVAN [Concomitant]
  12. UNSPECIFIED MEDICATION [Concomitant]
  13. KYTRIL [Concomitant]
  14. ETOPOSIDE [Concomitant]
  15. CISPLATIN [Concomitant]
  16. RADIATION THERAPY [Concomitant]

REACTIONS (1)
  - URTICARIA [None]
